FAERS Safety Report 10208925 (Version 1)
Quarter: 2014Q2

REPORT INFORMATION
  Report Type: Spontaneous
  Country: US (occurrence: US)
  Receive Date: 20140530
  Receipt Date: 20140530
  Transmission Date: 20141212
  Serious: No
  Sender: FDA-Public Use
  Company Number: US-TEVA-484754USA

PATIENT
  Sex: Female

DRUGS (1)
  1. PARAGARD 380A [Suspect]
     Indication: CONTRACEPTION
     Route: 015
     Dates: start: 200902, end: 20140522

REACTIONS (4)
  - Dizziness [Unknown]
  - Nervousness [Unknown]
  - Device breakage [Not Recovered/Not Resolved]
  - Muscle spasms [Unknown]
